FAERS Safety Report 10383855 (Version 2)
Quarter: 2014Q3

REPORT INFORMATION
  Report Type: Spontaneous
  Country: US (occurrence: US)
  Receive Date: 20140814
  Receipt Date: 20140826
  Transmission Date: 20150326
  Serious: No
  Sender: FDA-Public Use
  Company Number: US-AMGEN-USASP2014060814

PATIENT
  Age: 47 Year
  Sex: Female
  Weight: 75.74 kg

DRUGS (13)
  1. OXYCODONE [Concomitant]
     Active Substance: OXYCODONE
     Indication: PAIN
     Dosage: 15 MG, 1 TAB EVERY 4-6 HOURS AS NECESSARY
     Route: 048
     Dates: start: 20140714
  2. LYRICA [Concomitant]
     Active Substance: PREGABALIN
     Dosage: 150 MG, QHS,1 CAPSULE BY MOUTH AT BEDTIME
     Route: 048
     Dates: start: 20130701
  3. METHOTREXATE [Concomitant]
     Active Substance: METHOTREXATE
     Dosage: 2.5 MG, 4 TABS ONCE A WEEK
     Route: 048
     Dates: start: 20140723
  4. MIRAPEX [Concomitant]
     Active Substance: PRAMIPEXOLE DIHYDROCHLORIDE
     Dosage: 0.125 MG, QHS
     Route: 048
     Dates: start: 20140207
  5. CEFUROXIME. [Concomitant]
     Active Substance: CEFUROXIME
     Dosage: 500 MG, BID, 1 TAB
     Route: 048
     Dates: start: 20140811, end: 20140821
  6. PIROXICAM. [Concomitant]
     Active Substance: PIROXICAM
     Dosage: 20 MG,  1 CAP EVERYDAY
     Route: 048
     Dates: start: 20140723
  7. ENBREL [Suspect]
     Active Substance: ETANERCEPT
     Indication: RHEUMATOID ARTHRITIS
     Dosage: 50 MG, QWK
     Route: 058
     Dates: start: 20140723
  8. FOLIC ACID. [Concomitant]
     Active Substance: FOLIC ACID
     Dosage: 1 MG, 1 TAB EVERY DAY
     Route: 048
     Dates: start: 20140304
  9. NEXIUM [Concomitant]
     Active Substance: ESOMEPRAZOLE MAGNESIUM
     Dosage: 40 MG, UNK, 1 CAPSULE BY MOUTH EVERY DAY
     Route: 048
     Dates: start: 20140611
  10. PREDNISONE. [Concomitant]
     Active Substance: PREDNISONE
     Dosage: UNK
  11. SULFASALAZINE. [Concomitant]
     Active Substance: SULFASALAZINE
     Dosage: 500 MG, BID, 2 TABLETS
     Route: 048
     Dates: start: 20140723
  12. PLAQUENIL [Concomitant]
     Active Substance: HYDROXYCHLOROQUINE SULFATE
     Dosage: 200 MG, 2 TABS EVERYDAY
     Route: 048
     Dates: start: 20140723
  13. AMBIEN CR [Concomitant]
     Active Substance: ZOLPIDEM TARTRATE
     Indication: INSOMNIA
     Dosage: 10 MG, 0.5 - 1 TABS AT BEDTIME AS NEDEED
     Route: 048
     Dates: start: 20140609

REACTIONS (4)
  - Sinus congestion [Not Recovered/Not Resolved]
  - Sinusitis [Recovering/Resolving]
  - Rhinorrhoea [Not Recovered/Not Resolved]
  - Nasal congestion [Not Recovered/Not Resolved]

NARRATIVE: CASE EVENT DATE: 20140724
